FAERS Safety Report 8901010 (Version 2)
Quarter: 2012Q4

REPORT INFORMATION
  Report Type: 
  Country: JP (occurrence: JP)
  Receive Date: 20121109
  Receipt Date: 20121120
  Transmission Date: 20130627
  Serious: Yes (Other)
  Sender: FDA-Public Use
  Company Number: JP-BRISTOL-MYERS SQUIBB COMPANY-17104456

PATIENT
  Age: 50 Year
  Sex: Male

DRUGS (3)
  1. ABILIFY TABS [Suspect]
     Indication: BIPOLAR DISORDER
     Dosage: Unk date: 24 mg
started with 6mg/day
     Route: 048
  2. CONTOMIN [Concomitant]
  3. LIMAS [Concomitant]
     Dosage: tabs

REACTIONS (3)
  - Mania [Unknown]
  - Neuroleptic malignant syndrome [Recovering/Resolving]
  - Stupor [Unknown]
